FAERS Safety Report 9370911 (Version 3)
Quarter: 2013Q4

REPORT INFORMATION
  Report Type: Spontaneous
  Country: FR (occurrence: FR)
  Receive Date: 20130627
  Receipt Date: 20131009
  Transmission Date: 20140711
  Serious: Yes (Other)
  Sender: FDA-Public Use
  Company Number: FR-ROCHE-1238109

PATIENT
  Age: 50 Year
  Sex: Male

DRUGS (8)
  1. AVASTIN [Suspect]
     Indication: LUNG ADENOCARCINOMA
     Dosage: 1 ST CYCLE:04/APR/2013, 2ND CYCLE:25/APR/2013
     Route: 042
     Dates: start: 20130404, end: 20130425
  2. ALIMTA [Suspect]
     Indication: LUNG ADENOCARCINOMA
     Dosage: 1 ST CYCLE:04/APR/2013, 2ND CYCLE:25/APR/2013
     Route: 042
     Dates: start: 20130404, end: 20130425
  3. CARBOPLATIN [Suspect]
     Indication: LUNG ADENOCARCINOMA
     Dosage: 1 ST CYCLE:04/APR/2013, 2ND CYCLE:25/APR/2013
     Route: 042
     Dates: start: 20130404, end: 20130425
  4. KEPPRA [Concomitant]
     Dosage: 1 DF IN MORNING AND 1 DF IN EVENING
     Route: 065
  5. SPECIAFOLDINE [Concomitant]
     Dosage: 1 DF IN MORNING
     Route: 065
  6. VITAMIN B12 [Concomitant]
     Route: 058
  7. LYRICA [Concomitant]
  8. INEXIUM [Concomitant]
     Dosage: 1 DF IN EVENING
     Route: 065

REACTIONS (3)
  - Postoperative wound complication [Not Recovered/Not Resolved]
  - Wound secretion [Not Recovered/Not Resolved]
  - Wound dehiscence [Unknown]
